FAERS Safety Report 7888776-2 (Version None)
Quarter: 2011Q4

REPORT INFORMATION
  Report Type: 
  Country: None (occurrence: None)
  Receive Date: 20111103
  Receipt Date: 20111020
  Transmission Date: 20120403
  Serious: Yes (Other)
  Sender: FDA-Public Use
  Company Number: US-EISAI INC-E3810-05025-SPO-US

PATIENT
  Sex: Female
  Weight: 77 kg

DRUGS (4)
  1. ACIPHEX [Suspect]
     Route: 048
     Dates: start: 20111006
  2. PROTONIX [Concomitant]
     Route: 048
     Dates: start: 20110401, end: 20110401
  3. ACIPHEX [Suspect]
     Route: 048
     Dates: start: 19910101, end: 20110401
  4. PRILOSEC [Concomitant]
     Route: 048
     Dates: start: 20110401, end: 20111005

REACTIONS (4)
  - POLYP COLORECTAL [None]
  - HYPERTENSION [None]
  - MYALGIA [None]
  - BLOOD CHOLESTEROL INCREASED [None]
